FAERS Safety Report 8556570-5 (Version None)
Quarter: 2012Q3

REPORT INFORMATION
  Report Type: 
  Country: None (occurrence: None)
  Receive Date: 20120801
  Receipt Date: 20120724
  Transmission Date: 20120928
  Serious: Yes (Hospitalization)
  Sender: FDA-Public Use
  Company Number: US-BAYER-2012-075738

PATIENT
  Age: 48 Year
  Sex: Female

DRUGS (4)
  1. YAZ [Suspect]
     Indication: DYSFUNCTIONAL UTERINE BLEEDING
  2. PHENERGAN HCL [Concomitant]
  3. LEVOXYL [Concomitant]
     Dosage: 0.112 MG, DAILY
  4. YASMIN [Suspect]

REACTIONS (1)
  - DEEP VEIN THROMBOSIS [None]
